FAERS Safety Report 8906242 (Version 1)
Quarter: 2012Q4

REPORT INFORMATION
  Report Type: Spontaneous
  Country: US (occurrence: None)
  Receive Date: 20121112
  Receipt Date: 20121112
  Transmission Date: 20130627
  Serious: Yes (Other)
  Sender: FDA-Public Use
  Company Number: None

PATIENT
  Age: 63 Year
  Sex: Female
  Weight: 63.5 kg

DRUGS (2)
  1. BUPROPION [Suspect]
     Indication: DEPRESSION
     Route: 048
     Dates: start: 20121027, end: 20121110
  2. BUPROPION [Suspect]
     Indication: INSOMNIA
     Route: 048
     Dates: start: 20121027, end: 20121110

REACTIONS (1)
  - Skin exfoliation [None]
